FAERS Safety Report 19087659 (Version 2)
Quarter: 2021Q2

REPORT INFORMATION
  Report Type: Report from Study
  Country: DE (occurrence: DE)
  Receive Date: 20210402
  Receipt Date: 20210625
  Transmission Date: 20210717
  Serious: Yes (Hospitalization)
  Sender: FDA-Public Use
  Company Number: DE-ASTRAZENECA-2021A209703

PATIENT
  Age: 75 Year
  Sex: Female
  Weight: 57.5 kg

DRUGS (4)
  1. 5?FLUOROURACIL [Suspect]
     Active Substance: FLUOROURACIL
     Indication: ANAL CANCER
     Dosage: 1000 MG/M2 DAYS 1?5
     Route: 065
     Dates: start: 20210218
  2. MITOMYCIN C [Suspect]
     Active Substance: MITOMYCIN
     Indication: ANAL CANCER
     Dosage: 10 MG/M2 DAYS 1?5
     Route: 065
     Dates: start: 20210218
  3. NOVAMUZOFON?ACID [Concomitant]
     Route: 065
  4. DURVALUMAB. [Suspect]
     Active Substance: DURVALUMAB
     Indication: ANAL CANCER
     Route: 042
     Dates: start: 20210204

REACTIONS (1)
  - Radiation skin injury [Recovered/Resolved]

NARRATIVE: CASE EVENT DATE: 20210324
